FAERS Safety Report 24942307 (Version 1)
Quarter: 2025Q1

REPORT INFORMATION
  Report Type: Spontaneous
  Country: DE (occurrence: DE)
  Receive Date: 20250207
  Receipt Date: 20250207
  Transmission Date: 20250409
  Serious: Yes (Other)
  Sender: SANDOZ
  Company Number: DE-002147023-NVSC2020DE194462

PATIENT
  Sex: Female
  Weight: 74 kg

DRUGS (2)
  1. FULVESTRANT [Suspect]
     Active Substance: FULVESTRANT
     Indication: Hormone receptor positive HER2 negative breast cancer
     Dosage: 500 MG, QD (EVERY 4 WEEKS) (LAST FULVESTRANT ADMINISTARTION BEFORE THE EVENT WAS ON 02 DEC 2019)
     Route: 030
     Dates: start: 20191008
  2. KISQALI [Suspect]
     Active Substance: RIBOCICLIB
     Indication: Hormone receptor positive HER2 negative breast cancer
     Dosage: 600 MG, QD (LAST KISQALI ADMINISTRATION BEFORE THE EVENT WAS ON 13 DEC 2019)
     Route: 048
     Dates: start: 20191008

REACTIONS (2)
  - Pneumonia bacterial [Recovered/Resolved]
  - Fatigue [Recovering/Resolving]

NARRATIVE: CASE EVENT DATE: 20191214
